FAERS Safety Report 6436386-6 (Version None)
Quarter: 2009Q4

REPORT INFORMATION
  Report Type: 
  Country: None (occurrence: None)
  Receive Date: 20091111
  Receipt Date: 20091106
  Transmission Date: 20100525
  Serious: Yes (Death, Hospitalization)
  Sender: FDA-Public Use
  Company Number: PHEH2009US14825

PATIENT
  Sex: Male
  Weight: 80.7 kg

DRUGS (7)
  1. AFINITOR [Suspect]
     Indication: RENAL CELL CARCINOMA
     Dosage: 10 MG, QD
     Route: 048
     Dates: start: 20091006
  2. LIPITOR [Concomitant]
     Dosage: 10 MG, QD
  3. OXYCONTIN [Concomitant]
     Dosage: 2.5 MG, Q12H
  4. FLOMAX [Concomitant]
     Dosage: 0.4 MG, QD
  5. CLARINEX                                /USA/ [Concomitant]
     Dosage: 5 MG, QD
  6. GLIMEPIRIDE [Concomitant]
     Dosage: 2 MG, BID
  7. RADIATION [Concomitant]

REACTIONS (5)
  - ACUTE RESPIRATORY DISTRESS SYNDROME [None]
  - CHILLS [None]
  - FEBRILE NEUTROPENIA [None]
  - INTERSTITIAL LUNG DISEASE [None]
  - MULTI-ORGAN FAILURE [None]
